FAERS Safety Report 9220081 (Version 1)
Quarter: 2013Q2

REPORT INFORMATION
  Report Type: Spontaneous
  Country: US (occurrence: US)
  Receive Date: 20130409
  Receipt Date: 20130409
  Transmission Date: 20140414
  Serious: Yes (Death)
  Sender: FDA-Public Use
  Company Number: US-GILEAD-2013-0072864

PATIENT
  Sex: Female

DRUGS (3)
  1. LETAIRIS [Suspect]
     Indication: PRODUCT USED FOR UNKNOWN INDICATION
     Dates: start: 20090225
  2. LETAIRIS [Suspect]
     Dates: start: 20090226
  3. REVATIO [Concomitant]

REACTIONS (2)
  - Disease progression [Fatal]
  - Respiratory arrest [Fatal]
